FAERS Safety Report 9929275 (Version 1)
Quarter: 2014Q1

REPORT INFORMATION
  Report Type: Spontaneous
  Country: US (occurrence: None)
  Receive Date: 20140109
  Receipt Date: 20140109
  Transmission Date: 20141002
  Serious: Yes (Hospitalization)
  Sender: FDA-Public Use
  Company Number: 372768

PATIENT
  Age: 41 Year
  Sex: Female

DRUGS (2)
  1. LEVEMIR [Suspect]
     Indication: DIABETES MELLITUS
     Route: 058
  2. HUMALOG(INSULIN LISPRO) [Concomitant]

REACTIONS (1)
  - Diabetic ketoacidosis [None]
